FAERS Safety Report 5138443-3 (Version None)
Quarter: 2006Q4

REPORT INFORMATION
  Report Type: 
  Country: None (occurrence: None)
  Receive Date: 20061030
  Receipt Date: 20060224
  Transmission Date: 20070319
  Serious: No
  Sender: FDA-Public Use
  Company Number: US-GLAXOSMITHKLINE-A0595143A

PATIENT
  Age: 78 Year
  Sex: Female

DRUGS (4)
  1. ADVAIR HFA [Suspect]
     Indication: ASTHMA
     Route: 055
  2. DILANTIN [Concomitant]
  3. FOSAMAX [Concomitant]
  4. ALLEGRA [Concomitant]

REACTIONS (1)
  - APHONIA [None]
